FAERS Safety Report 8913380 (Version 7)
Quarter: 2019Q1

REPORT INFORMATION
  Report Type: Report from Study
  Country: RU (occurrence: RU)
  Receive Date: 20121116
  Receipt Date: 20190318
  Transmission Date: 20190418
  Serious: Yes (Death, Hospitalization)
  Sender: FDA-Public Use
  Company Number: RU-PFIZER INC-2012284062

PATIENT
  Age: 71 Year
  Sex: Female
  Weight: 71.2 kg

DRUGS (6)
  1. TOFACITINIB CITRATE [Suspect]
     Active Substance: TOFACITINIB CITRATE
     Indication: RHEUMATOID ARTHRITIS
     Dosage: 5 MG, 2X/DAY
     Route: 048
     Dates: start: 20100831, end: 20120822
  2. ARIFON RETARD [Concomitant]
     Indication: HYPERTENSION
     Dosage: 1.5 MG, 1X/DAY
     Route: 048
     Dates: start: 20110318
  3. METHOTREXATE. [Concomitant]
     Active Substance: METHOTREXATE
     Dosage: UNK UNK, SINGLE
  4. NO-SPA [Concomitant]
     Active Substance: DROTAVERINE HYDROCHLORIDE
     Indication: CALCULUS URINARY
     Dosage: 40 MG, 3X/DAY
     Route: 048
     Dates: start: 20120829
  5. CYSTONE [Concomitant]
     Indication: CALCULUS URINARY
     Dosage: 1 DF (TAB), 3X/DAY
     Route: 048
     Dates: start: 20120829
  6. PREDNISOLONE. [Concomitant]
     Active Substance: PREDNISOLONE
     Indication: RHEUMATOID ARTHRITIS
     Dosage: 5 MG, 1X/DAY
     Route: 048
     Dates: start: 20110319

REACTIONS (1)
  - Non-Hodgkin^s lymphoma [Fatal]

NARRATIVE: CASE EVENT DATE: 20120921
